FAERS Safety Report 6353112-X (Version None)
Quarter: 2009Q3

REPORT INFORMATION
  Report Type: 
  Country: None (occurrence: None)
  Receive Date: 20090912
  Receipt Date: 20090622
  Transmission Date: 20100115
  Serious: No
  Sender: FDA-Public Use
  Company Number: US-ABBOTT-08P-163-0453339-00

PATIENT
  Sex: Male

DRUGS (3)
  1. HUMIRA [Suspect]
     Indication: COLITIS ULCERATIVE
  2. CLOXAZOLAM [Concomitant]
     Indication: COLITIS ULCERATIVE
     Dosage: 9 PILLS
  3. CLOXAZOLAM [Concomitant]
     Dosage: 12 PILLS

REACTIONS (5)
  - COLITIS ULCERATIVE [None]
  - DRUG DELIVERY SYSTEM MALFUNCTION [None]
  - DRUG INEFFECTIVE [None]
  - INCORRECT DOSE ADMINISTERED [None]
  - INJECTION SITE PAIN [None]
